FAERS Safety Report 7500647-X (Version None)
Quarter: 2011Q2

REPORT INFORMATION
  Report Type: 
  Country: None (occurrence: None)
  Receive Date: 20110524
  Receipt Date: 20110520
  Transmission Date: 20111010
  Serious: Yes (Disabling)
  Sender: FDA-Public Use
  Company Number: IT-BAYER-2011-043755

PATIENT
  Age: 76 Year
  Sex: Male

DRUGS (5)
  1. ASPIRIN [Concomitant]
     Indication: HYPERCOAGULATION
     Dosage: 100 MG, QD
     Route: 048
     Dates: start: 20090101, end: 20110516
  2. LEXOTAN [Concomitant]
     Indication: ANXIETY DISORDER
     Dosage: DAILY DOSE 1.5 MG
     Route: 048
     Dates: start: 20090101, end: 20110516
  3. NEXAVAR [Suspect]
     Indication: HEPATIC NEOPLASM MALIGNANT NON-RESECTABLE
     Dosage: DAILY DOSE 800 MG
     Route: 048
     Dates: start: 20101024, end: 20110218
  4. BARACLUDE [Concomitant]
     Indication: HEPATITIS B
     Dosage: DAILY DOSE .5 MG
     Route: 048
     Dates: start: 20101016, end: 20110516
  5. HUMULIN R [Concomitant]
     Indication: DIABETES MELLITUS
     Dosage: DAILY DOSE 26 IU
     Route: 058
     Dates: start: 20090101, end: 20110516

REACTIONS (2)
  - SKIN ULCER [None]
  - HYPERKERATOSIS [None]
